FAERS Safety Report 18622841 (Version 8)
Quarter: 2025Q1

REPORT INFORMATION
  Report Type: Report from Study
  Country: NL (occurrence: NL)
  Receive Date: 20201216
  Receipt Date: 20250122
  Transmission Date: 20250408
  Serious: Yes (Hospitalization)
  Sender: AMGEN
  Company Number: NL-AMGEN-NLDNI2020202104

PATIENT
  Age: 51 Year
  Sex: Female
  Weight: 98.4 kg

DRUGS (10)
  1. BLINATUMOMAB [Suspect]
     Active Substance: BLINATUMOMAB
     Indication: Acute lymphocytic leukaemia
     Dosage: 28 MICROGRAM, QD
     Route: 042
     Dates: start: 20200221
  2. METHYLCELLULOSES [Concomitant]
     Active Substance: METHYLCELLULOSES
     Dates: start: 20200131, end: 20200731
  3. NADROPARIN [Concomitant]
     Active Substance: NADROPARIN
     Dates: start: 20191224, end: 20200902
  4. SODIUM FLUORIDE [Concomitant]
     Active Substance: SODIUM FLUORIDE
     Dates: start: 20200220, end: 20200703
  5. CALCIUM CARBONATE\CHOLECALCIFEROL [Concomitant]
     Active Substance: CALCIUM CARBONATE\CHOLECALCIFEROL
     Dates: start: 20191203
  6. OLANZAPINE [Concomitant]
     Active Substance: OLANZAPINE
     Dates: start: 20191211
  7. COTRIMOXAZOLE [Concomitant]
     Active Substance: SULFAMETHOXAZOLE\TRIMETHOPRIM
     Dates: start: 20191217
  8. VALACYCLOVIR HYDROCHLORIDE [Concomitant]
     Active Substance: VALACYCLOVIR HYDROCHLORIDE
     Dates: start: 20191217, end: 20201119
  9. HEPARIN [Concomitant]
     Active Substance: HEPARIN SODIUM
     Dates: start: 20200220, end: 20200603
  10. EUTHYROX [Concomitant]
     Active Substance: LEVOTHYROXINE SODIUM
     Dates: start: 20170809, end: 20200309

REACTIONS (1)
  - Cholelithiasis [Recovered/Resolved]

NARRATIVE: CASE EVENT DATE: 20200411
